FAERS Safety Report 10993994 (Version 1)
Quarter: 2015Q2

REPORT INFORMATION
  Report Type: Spontaneous
  Country: US (occurrence: None)
  Receive Date: 20150406
  Receipt Date: 20150406
  Transmission Date: 20150821
  Serious: No
  Sender: FDA-Public Use
  Company Number: None

PATIENT
  Age: 42 Year
  Sex: Female
  Weight: 68.04 kg

DRUGS (1)
  1. SOMA [Suspect]
     Active Substance: CARISOPRODOL
     Dosage: 350

REACTIONS (1)
  - Pruritus [None]

NARRATIVE: CASE EVENT DATE: 20150404
